FAERS Safety Report 20292039 (Version 6)
Quarter: 2022Q1

REPORT INFORMATION
  Report Type: Spontaneous
  Country: US (occurrence: US)
  Receive Date: 20220104
  Receipt Date: 20220207
  Transmission Date: 20220423
  Serious: Yes (Other)
  Sender: FDA-Public Use
  Company Number: US-ELI_LILLY_AND_COMPANY-US202201000069

PATIENT
  Age: 55 Year
  Sex: Female
  Weight: 48.53 kg

DRUGS (7)
  1. TADALAFIL [Suspect]
     Active Substance: TADALAFIL
     Indication: Pulmonary arterial hypertension
     Dosage: UNK UNK, UNKNOWN
     Route: 065
     Dates: end: 20211224
  2. REMODULIN [Suspect]
     Active Substance: TREPROSTINIL
     Indication: Pulmonary arterial hypertension
     Dosage: 16 NG/KG/MIN, DAILY
     Route: 058
     Dates: start: 20210908
  3. REMODULIN [Suspect]
     Active Substance: TREPROSTINIL
     Dosage: 18.5 NG/KG/MIN, DAILY
     Route: 058
  4. REMODULIN [Suspect]
     Active Substance: TREPROSTINIL
     Dosage: 18.5 NG/KG/MIN, DAILY
     Route: 058
  5. REMODULIN [Suspect]
     Active Substance: TREPROSTINIL
     Dosage: 18.5 NG/KG/MIN, DAILY
     Route: 058
  6. LORAZEPAM [Suspect]
     Active Substance: LORAZEPAM
     Indication: Vomiting
     Dosage: UNK, UNKNOWN
     Route: 065
  7. LORAZEPAM [Suspect]
     Active Substance: LORAZEPAM
     Indication: Diarrhoea

REACTIONS (12)
  - Syncope [Unknown]
  - Visual impairment [Unknown]
  - Infection [Unknown]
  - Decreased appetite [Unknown]
  - Constipation [Unknown]
  - Feeling abnormal [Unknown]
  - Diarrhoea [Not Recovered/Not Resolved]
  - Vomiting [Not Recovered/Not Resolved]
  - Dizziness [Unknown]
  - Dizziness [Unknown]
  - Dizziness [Not Recovered/Not Resolved]
  - Malaise [Unknown]

NARRATIVE: CASE EVENT DATE: 20210908
